FAERS Safety Report 24033451 (Version 1)
Quarter: 2024Q3

REPORT INFORMATION
  Report Type: Spontaneous
  Country: US (occurrence: US)
  Receive Date: 20240701
  Receipt Date: 20240701
  Transmission Date: 20241017
  Serious: No
  Sender: UCB
  Company Number: US-UCBSA-2024003482

PATIENT
  Age: 23 Year
  Sex: Female

DRUGS (5)
  1. MIDAZOLAM [Suspect]
     Active Substance: MIDAZOLAM
     Indication: Muscle rigidity
     Dosage: 2.5 MILLIGRAM
  2. MIDAZOLAM [Suspect]
     Active Substance: MIDAZOLAM
     Indication: Incoherent
  3. MIDAZOLAM [Suspect]
     Active Substance: MIDAZOLAM
     Indication: Off label use
  4. DROPERIDOL [Concomitant]
     Active Substance: DROPERIDOL
     Indication: Muscle rigidity
     Dosage: 1.25 MILLIGRAM
  5. DROPERIDOL [Concomitant]
     Active Substance: DROPERIDOL
     Indication: Incoherent

REACTIONS (1)
  - No adverse event [Unknown]
